FAERS Safety Report 10234548 (Version 1)
Quarter: 2014Q2

REPORT INFORMATION
  Report Type: Spontaneous
  Country: DE (occurrence: DE)
  Receive Date: 20140613
  Receipt Date: 20140613
  Transmission Date: 20141212
  Serious: Yes (Other)
  Sender: FDA-Public Use
  Company Number: GXKR2014DE002242

PATIENT
  Sex: 0

DRUGS (3)
  1. BICALUTAMIDE [Suspect]
     Indication: HORMONE-REFRACTORY PROSTATE CANCER
     Dosage: STANDARD
     Dates: start: 201210
  2. RADIUM RA-223 DICHLORIDE [Suspect]
     Indication: HORMONE-REFRACTORY PROSTATE CANCER
     Dosage: 0,05 MBQ/KG BODY WEIGHT
     Route: 042
     Dates: start: 20140512
  3. ANTI-ANDROGENS [Suspect]
     Indication: HORMONE-REFRACTORY PROSTATE CANCER
     Dates: start: 201210

REACTIONS (1)
  - Brain oedema [Recovering/Resolving]
